APPROVED DRUG PRODUCT: ADCIRCA
Active Ingredient: TADALAFIL
Strength: 20MG
Dosage Form/Route: TABLET;ORAL
Application: N022332 | Product #001 | TE Code: AB2
Applicant: ELI LILLY CO
Approved: May 22, 2009 | RLD: Yes | RS: Yes | Type: RX